FAERS Safety Report 4753718-5 (Version None)
Quarter: 2005Q3

REPORT INFORMATION
  Report Type: 
  Country: None (occurrence: None)
  Receive Date: 20050826
  Receipt Date: 20050719
  Transmission Date: 20060218
  Serious: Yes (Hospitalization)
  Sender: FDA-Public Use
  Company Number: FR-BRISTOL-MYERS SQUIBB COMPANY-13046412

PATIENT
  Age: 81 Year
  Sex: Male

DRUGS (6)
  1. VASTEN TABS 20 MG [Suspect]
     Route: 048
     Dates: start: 20050118
  2. KARDEGIC [Suspect]
     Route: 048
     Dates: start: 20050118
  3. AMLOR [Suspect]
     Route: 048
     Dates: start: 20050118
  4. ZECLAR [Suspect]
     Indication: BRONCHITIS
     Route: 048
     Dates: start: 20050524, end: 20050531
  5. INIPOMP [Suspect]
     Route: 048
     Dates: start: 20050118
  6. THALIDOMIDE [Suspect]
     Route: 048
     Dates: start: 20050118, end: 20050708

REACTIONS (20)
  - ABDOMINAL PAIN [None]
  - ANOREXIA [None]
  - ASTHENIA [None]
  - BACK PAIN [None]
  - BRONCHITIS [None]
  - DEHYDRATION [None]
  - DIARRHOEA [None]
  - DISEASE RECURRENCE [None]
  - DRUG INEFFECTIVE [None]
  - DYSPNOEA [None]
  - ESCHERICHIA INFECTION [None]
  - LEUKOPENIA [None]
  - MULTIPLE MYELOMA [None]
  - NEUROPATHY [None]
  - PANCYTOPENIA [None]
  - PROTEINURIA [None]
  - RENAL FAILURE ACUTE [None]
  - TACHYPNOEA [None]
  - URINARY TRACT INFECTION [None]
  - VOMITING [None]
